FAERS Safety Report 7718339-0 (Version None)
Quarter: 2011Q3

REPORT INFORMATION
  Report Type: 
  Country: None (occurrence: None)
  Receive Date: 20110830
  Receipt Date: 20110824
  Transmission Date: 20111222
  Serious: Yes (Death)
  Sender: FDA-Public Use
  Company Number: PHHY2011PE76837

PATIENT
  Sex: Male

DRUGS (1)
  1. STALEVO 100 [Suspect]
     Indication: PARKINSON'S DISEASE
     Dosage: 150 MG OF ENTACAPONE /37.5 MG OF LEVADOPA/ 200 MG OF CARBIDOPA
     Dates: start: 20070322

REACTIONS (1)
  - CARDIAC ANEURYSM [None]
